FAERS Safety Report 14263885 (Version 2)
Quarter: 2017Q4

REPORT INFORMATION
  Report Type: Spontaneous
  Country: DE (occurrence: NL)
  Receive Date: 20171208
  Receipt Date: 20171208
  Transmission Date: 20180321
  Serious: Yes (Death)
  Sender: FDA-Public Use
  Company Number: NL-MERZ NORTH AMERICA, INC.-17MRZ-00402

PATIENT
  Age: 18 Year
  Sex: Male
  Weight: 65 kg

DRUGS (1)
  1. ASCLERA [Suspect]
     Active Substance: POLIDOCANOL
     Indication: VEIN DISORDER
     Dosage: 2 {DF}
     Route: 042
     Dates: start: 20140429, end: 20140429

REACTIONS (14)
  - Chest discomfort [Fatal]
  - Dysgeusia [Fatal]
  - Cough [Fatal]
  - Malaise [Fatal]
  - Nausea [Fatal]
  - Dizziness [Fatal]
  - Vomiting [Fatal]
  - Headache [Fatal]
  - Hypersensitivity [Fatal]
  - Palpitations [Fatal]
  - Pneumonia [Fatal]
  - Epistaxis [Fatal]
  - Pain in extremity [Fatal]
  - Presyncope [Fatal]

NARRATIVE: CASE EVENT DATE: 20140405
